FAERS Safety Report 24615816 (Version 1)
Quarter: 2024Q4

REPORT INFORMATION
  Report Type: Spontaneous
  Country: US (occurrence: US)
  Receive Date: 20241113
  Receipt Date: 20241113
  Transmission Date: 20250115
  Serious: No
  Sender: GALDERMA
  Company Number: US-GALDERMA-US2024001120

PATIENT

DRUGS (4)
  1. AKLIEF [Suspect]
     Active Substance: TRIFAROTENE
     Indication: Pigmentation disorder
     Dosage: 1 DOSAGE FORM
     Route: 061
  2. AKLIEF [Suspect]
     Active Substance: TRIFAROTENE
     Indication: Skin discolouration
  3. CETAPHIL NOS [Suspect]
     Active Substance: UNSPECIFIED INGREDIENT
     Indication: Pigmentation disorder
     Dosage: 1 DOSAGE FORM
     Route: 061
  4. CETAPHIL NOS [Suspect]
     Active Substance: UNSPECIFIED INGREDIENT
     Indication: Skin discolouration

REACTIONS (2)
  - Drug effective for unapproved indication [Recovered/Resolved]
  - Intentional product misuse [Recovered/Resolved]
